FAERS Safety Report 9127380 (Version 1)
Quarter: 2013Q1

REPORT INFORMATION
  Report Type: Spontaneous
  Country: GB (occurrence: GB)
  Receive Date: 20130125
  Receipt Date: 20130125
  Transmission Date: 20140127
  Serious: Yes (Other)
  Sender: FDA-Public Use
  Company Number: GB-PFIZER INC-2013029611

PATIENT
  Age: 38 Year
  Sex: Male

DRUGS (2)
  1. CHAMPIX [Suspect]
     Indication: SMOKING CESSATION THERAPY
     Dosage: UNK
  2. SALBUTAMOL [Concomitant]
     Dosage: UNK

REACTIONS (4)
  - Depression [Not Recovered/Not Resolved]
  - Agitation [Not Recovered/Not Resolved]
  - Nightmare [Not Recovered/Not Resolved]
  - Crying [Not Recovered/Not Resolved]
